FAERS Safety Report 4488179-7 (Version None)
Quarter: 2004Q4

REPORT INFORMATION
  Report Type: 
  Country: None (occurrence: None)
  Receive Date: 20041028
  Receipt Date: 20041025
  Transmission Date: 20050328
  Serious: Yes (Death)
  Sender: FDA-Public Use
  Company Number: PHBS2004BR14192

PATIENT

DRUGS (1)
  1. TRILEPTAL [Suspect]
     Dosage: 300 MG/DAY
     Route: 048

REACTIONS (1)
  - DEATH [None]
